FAERS Safety Report 7668032 (Version 5)
Quarter: 2012Q4

REPORT INFORMATION
  Report Type: 
  Country: US (occurrence: US)
  Receive Date: 20101115
  Receipt Date: 20121001
  Transmission Date: 20130627
  Serious: Yes (Hospitalization)
  Sender: FDA-Public Use
  Company Number: US-BAYER-201032241NA

PATIENT
  Age: 23 Year
  Sex: Female
  Weight: 62.13 kg

DRUGS (8)
  1. YAZ [Suspect]
     Dosage: UNK
     Route: 048
     Dates: start: 2004, end: 2009
  2. YASMIN [Suspect]
     Dosage: UNK
     Route: 048
     Dates: start: 2004, end: 2009
  3. NSAID^S [Concomitant]
  4. CIPROFLOXACIN HCL [Concomitant]
     Dosage: 500 mg, UNK
     Dates: start: 200901
  5. METRONIDAZOLE [Concomitant]
     Dosage: 500 mg, UNK
     Dates: start: 200901
  6. ACETAMINOPHEN W/OXYCODONE [Concomitant]
     Dosage: 5-325
     Dates: start: 20090409
  7. NEXIUM [Concomitant]
     Indication: ABDOMINAL PAIN
     Dosage: 40 mg, UNK
     Route: 048
  8. TYLENOL [Concomitant]
     Indication: PYREXIA
     Dosage: 1000 mg, PRN
     Route: 048

REACTIONS (6)
  - Pulmonary embolism [Recovered/Resolved]
  - Pulmonary infarction [None]
  - Thrombosis [None]
  - Deep vein thrombosis [Recovered/Resolved]
  - Injury [None]
  - Pain [Recovered/Resolved]
